FAERS Safety Report 7285043-5 (Version None)
Quarter: 2011Q1

REPORT INFORMATION
  Report Type: 
  Country: None (occurrence: None)
  Receive Date: 20110204
  Receipt Date: 20110204
  Transmission Date: 20110831
  Serious: Yes (Disabling)
  Sender: FDA-Public Use
  Company Number: None

PATIENT
  Age: 42 Year
  Sex: Female
  Weight: 48.9885 kg

DRUGS (2)
  1. FOSAMAX [Suspect]
     Indication: OSTEOPOROSIS
     Dosage: 1 A DAY DOSE 1 X DAY ORAL
     Route: 048
     Dates: start: 20010101
  2. FOSAMAX [Suspect]
     Indication: OSTEOPENIA
     Dosage: 1 A DAY DOSE 1 X DAY ORAL
     Route: 048
     Dates: start: 20010101

REACTIONS (5)
  - PAIN [None]
  - GAIT DISTURBANCE [None]
  - PLANTAR FASCIITIS [None]
  - CHEST PAIN [None]
  - DYSSTASIA [None]
